FAERS Safety Report 19165479 (Version 1)
Quarter: 2021Q2

REPORT INFORMATION
  Report Type: Spontaneous
  Country: CN (occurrence: CN)
  Receive Date: 20210421
  Receipt Date: 20210421
  Transmission Date: 20210717
  Serious: Yes (Life-Threatening, Other)
  Sender: FDA-Public Use
  Company Number: CN-BAUSCH-BL-2021-012850

PATIENT
  Age: 63 Year
  Sex: Female

DRUGS (2)
  1. TIMOLOL MALEATE EYE DROPS [Suspect]
     Active Substance: TIMOLOL MALEATE
     Indication: INTRAOCULAR PRESSURE INCREASED
     Route: 047
     Dates: start: 20210402, end: 20210405
  2. PILOCARPINE NITRATE 0.5% EYE DROPS [Suspect]
     Active Substance: PILOCARPINE NITRATE
     Indication: MIOSIS
     Route: 047
     Dates: start: 20210405, end: 20210405

REACTIONS (1)
  - Anaphylactic shock [Recovering/Resolving]

NARRATIVE: CASE EVENT DATE: 20210405
